FAERS Safety Report 25158314 (Version 4)
Quarter: 2025Q2

REPORT INFORMATION
  Report Type: Spontaneous
  Country: US (occurrence: US)
  Receive Date: 20250404
  Receipt Date: 20250612
  Transmission Date: 20250716
  Serious: No
  Sender: BIOGEN
  Company Number: US-BIOGEN-2025BI01306479

PATIENT
  Sex: Female

DRUGS (2)
  1. TYSABRI [Suspect]
     Active Substance: NATALIZUMAB
     Indication: Multiple sclerosis
     Route: 050
     Dates: start: 20220810
  2. TYSABRI [Suspect]
     Active Substance: NATALIZUMAB
     Route: 050
     Dates: start: 20120109, end: 20130617

REACTIONS (11)
  - Neurogenic bladder [Unknown]
  - Temperature intolerance [Unknown]
  - Androgenetic alopecia [Unknown]
  - Cognitive disorder [Unknown]
  - Pain [Unknown]
  - Fall [Recovered/Resolved]
  - Tooth disorder [Unknown]
  - Tooth avulsion [Unknown]
  - Muscle spasticity [Unknown]
  - Liver function test increased [Not Recovered/Not Resolved]
  - Limb injury [Unknown]

NARRATIVE: CASE EVENT DATE: 20220101
